FAERS Safety Report 9258090 (Version 1)
Quarter: 2013Q1

REPORT INFORMATION
  Report Type: Spontaneous
  Country: US (occurrence: None)
  Receive Date: 20121212
  Receipt Date: 20121212
  Transmission Date: 20140127
  Serious: No
  Sender: FDA-Public Use
  Company Number: 1208USA011277

PATIENT
  Age: 61 Year
  Sex: Male

DRUGS (3)
  1. REBETOL [Suspect]
     Indication: HEPATITIS C
     Dates: start: 20120713
  2. VICTRELIS [Suspect]
     Indication: HEPATITIS C
     Dates: start: 20120810
  3. PEGINTERFERON ALFA-2B [Concomitant]

REACTIONS (4)
  - Asthenia [None]
  - Dizziness [None]
  - Influenza like illness [None]
  - Diarrhoea [None]
